FAERS Safety Report 6572708-3 (Version None)
Quarter: 2010Q1

REPORT INFORMATION
  Report Type: 
  Country: None (occurrence: None)
  Receive Date: 20100205
  Receipt Date: 20100202
  Transmission Date: 20100710
  Serious: Yes (Other)
  Sender: FDA-Public Use
  Company Number: JP-PFIZER INC-2010014833

PATIENT
  Age: 32 Month
  Sex: Male

DRUGS (1)
  1. SOLU-MEDROL [Suspect]
     Dosage: 12 MG/DAY
     Route: 042
     Dates: start: 20100131

REACTIONS (1)
  - MENTAL STATUS CHANGES [None]
